FAERS Safety Report 24595026 (Version 2)
Quarter: 2024Q4

REPORT INFORMATION
  Report Type: Spontaneous
  Country: US (occurrence: US)
  Receive Date: 20241108
  Receipt Date: 20241205
  Transmission Date: 20250114
  Serious: Yes (Hospitalization, Other)
  Sender: PFIZER
  Company Number: US-PFIZER INC-202400293847

PATIENT
  Age: 16 Year
  Sex: Female
  Weight: 42.7 kg

DRUGS (9)
  1. GENOTROPIN [Suspect]
     Active Substance: SOMATROPIN
     Indication: Growth hormone deficiency
     Dosage: 1.5 MG PER DAY
     Route: 058
  2. GENOTROPIN [Suspect]
     Active Substance: SOMATROPIN
     Dosage: 1.4 MG DAILY
     Route: 058
  3. CALCIUM CARBONATE [Concomitant]
     Active Substance: CALCIUM CARBONATE
     Dosage: 1 TABLET VIA G-TUBE ONCE DAY FOR 30 DAYS
  4. CIPRO [Concomitant]
     Active Substance: CIPROFLOXACIN HYDROCHLORIDE
     Dosage: 250 MG
  5. FAMOTIDINE [Concomitant]
     Active Substance: FAMOTIDINE
     Dosage: UNK
  6. LEVOFLOXACIN [Concomitant]
     Active Substance: LEVOFLOXACIN
     Dosage: UNK
  7. DEPO-PROVERA [Concomitant]
     Active Substance: MEDROXYPROGESTERONE ACETATE
     Dosage: 150 MG/ML, EVERY 3 MONTHS
     Route: 030
  8. CHOLECALCIFEROL [Concomitant]
     Active Substance: CHOLECALCIFEROL
     Dosage: 2000 IU, DAILY
  9. JEVITY 1.2 CAL [Concomitant]
     Dosage: UNK

REACTIONS (45)
  - Pneumothorax [Recovered/Resolved]
  - Seizure [Unknown]
  - Scoliosis [Unknown]
  - Kidney infection [Unknown]
  - Neutrophil count increased [Unknown]
  - White blood cell count increased [Unknown]
  - Infection [Unknown]
  - Blood urea nitrogen/creatinine ratio increased [Unknown]
  - Blood creatinine decreased [Unknown]
  - Blood glucose increased [Unknown]
  - Haematocrit increased [Unknown]
  - Haemoglobin increased [Unknown]
  - Sleep disorder [Unknown]
  - Asthenia [Unknown]
  - Affective disorder [Unknown]
  - Anxiety [Unknown]
  - Depression [Unknown]
  - Temperature intolerance [Unknown]
  - Hypoacusis [Unknown]
  - Visual impairment [Unknown]
  - Oropharyngeal pain [Unknown]
  - Swelling [Unknown]
  - Headache [Unknown]
  - Dizziness [Unknown]
  - Paraesthesia [Unknown]
  - Hypoaesthesia [Unknown]
  - Appetite disorder [Unknown]
  - Skin disorder [Unknown]
  - Alopecia [Unknown]
  - Weight decreased [Unknown]
  - Weight increased [Unknown]
  - Respiratory symptom [Unknown]
  - Cardiac disorder [Unknown]
  - Myalgia [Unknown]
  - Arthralgia [Unknown]
  - Gait disturbance [Unknown]
  - Polydipsia [Unknown]
  - Polyuria [Unknown]
  - Enuresis [Unknown]
  - Dysuria [Unknown]
  - Vomiting [Unknown]
  - Nausea [Unknown]
  - Diarrhoea [Unknown]
  - Abdominal pain [Unknown]
  - Constipation [Unknown]

NARRATIVE: CASE EVENT DATE: 20230928
